FAERS Safety Report 7503245-7 (Version None)
Quarter: 2011Q2

REPORT INFORMATION
  Report Type: 
  Country: None (occurrence: None)
  Receive Date: 20110525
  Receipt Date: 20110105
  Transmission Date: 20111010
  Serious: No
  Sender: FDA-Public Use
  Company Number: A0903336A

PATIENT
  Age: 64 Year
  Sex: Male

DRUGS (2)
  1. BACTROBAN [Suspect]
     Dosage: 1APP THREE TIMES PER DAY
     Route: 045
     Dates: start: 20040101
  2. LIPITOR [Concomitant]

REACTIONS (2)
  - PRODUCT QUALITY ISSUE [None]
  - DRUG INEFFECTIVE [None]
